FAERS Safety Report 15427111 (Version 1)
Quarter: 2018Q3

REPORT INFORMATION
  Report Type: Spontaneous
  Country: US (occurrence: US)
  Receive Date: 20180925
  Receipt Date: 20180925
  Transmission Date: 20181010
  Serious: No
  Sender: FDA-Public Use
  Company Number: US-INDIVIOR LIMITED-INDV-110096-2018

PATIENT
  Age: 54 Year
  Sex: Male

DRUGS (4)
  1. BUPRENORPHINE/NALOXONE GENERIC [Suspect]
     Active Substance: BUPRENORPHINE\NALOXONE
     Indication: DRUG DEPENDENCE
     Dosage: 8 MG TABLET ( HALF IN MORNING AND HALF IN THE AFTERNOON
     Route: 060
     Dates: end: 2017
  2. SUBOXONE [Suspect]
     Active Substance: BUPRENORPHINE HYDROCHLORIDE\NALOXONE HYDROCHLORIDE
     Indication: DRUG DEPENDENCE
     Dosage: 8 MG FILM HALF IN THE MORNING AND HALF IN THE AFTERNOON
     Route: 060
     Dates: start: 2017, end: 2017
  3. HEROIN [Suspect]
     Active Substance: DIAMORPHINE
     Indication: PRODUCT USED FOR UNKNOWN INDICATION
     Dosage: UNK
     Route: 045
     Dates: start: 2017
  4. SUBOXONE [Suspect]
     Active Substance: BUPRENORPHINE HYDROCHLORIDE\NALOXONE HYDROCHLORIDE
     Dosage: 8 MG FILM HALF IN THE MORNING AND HALF IN THE AFTERNOON
     Route: 048
     Dates: start: 2017, end: 2017

REACTIONS (5)
  - Wrong technique in product usage process [Recovered/Resolved]
  - Incorrect route of drug administration [Recovered/Resolved]
  - Product use issue [Recovered/Resolved]
  - Intentional underdose [Unknown]
  - Drug dependence [Unknown]

NARRATIVE: CASE EVENT DATE: 2017
